FAERS Safety Report 21613261 (Version 4)
Quarter: 2023Q1

REPORT INFORMATION
  Report Type: Report from Study
  Country: US (occurrence: US)
  Receive Date: 20221118
  Receipt Date: 20230116
  Transmission Date: 20230417
  Serious: No
  Sender: FDA-Public Use
  Company Number: US-002147023-NVSC2022US259643

PATIENT
  Sex: Female

DRUGS (1)
  1. COSENTYX [Suspect]
     Active Substance: SECUKINUMAB
     Indication: Psoriasis
     Dosage: 300 MG, QMO (STARTED ABOUT 3-4 MONTHS AGO WITH LOADING DOSES)
     Route: 065

REACTIONS (2)
  - Skin lesion [Unknown]
  - Therapeutic product effect incomplete [Unknown]
